FAERS Safety Report 9502557 (Version 1)
Quarter: 2013Q3

REPORT INFORMATION
  Report Type: Spontaneous
  Country: US (occurrence: US)
  Receive Date: 20130906
  Receipt Date: 20130906
  Transmission Date: 20140515
  Serious: Yes (Hospitalization, Other)
  Sender: FDA-Public Use
  Company Number: US-BAYER-2013-106585

PATIENT
  Age: 27 Year
  Sex: Female

DRUGS (10)
  1. YAZ [Suspect]
  2. NICORETTE [Concomitant]
  3. NAPROXEN [Concomitant]
  4. LORAZEPAM [Concomitant]
  5. ZOLPIDEM [Concomitant]
  6. AUGMENTIN [Concomitant]
  7. VICODIN [Concomitant]
  8. ALPRAZOLAM [Concomitant]
  9. PERCOCET [Concomitant]
  10. IBUPROFEN [Concomitant]
     Indication: BREAKTHROUGH PAIN

REACTIONS (4)
  - Deep vein thrombosis [Recovered/Resolved]
  - Deep vein thrombosis [Recovered/Resolved]
  - Thrombophlebitis superficial [None]
  - Thrombophlebitis superficial [None]
